FAERS Safety Report 17579089 (Version 1)
Quarter: 2020Q1

REPORT INFORMATION
  Report Type: Report from Study
  Country: None (occurrence: NL)
  Receive Date: 20200325
  Receipt Date: 20200325
  Transmission Date: 20200409
  Serious: Yes (Death)
  Sender: FDA-Public Use
  Company Number: NL-ABBVIE-19S-114-2686367-00

PATIENT
  Age: 70 Year
  Sex: Male
  Weight: 74 kg

DRUGS (5)
  1. MOVICOLON [Concomitant]
     Active Substance: POLYETHYLENE GLYCOL 3350\POTASSIUM CHLORIDE\SODIUM BICARBONATE\SODIUM CHLORIDE
     Indication: ABNORMAL FAECES
  2. CLONAZEPAM. [Concomitant]
     Active Substance: CLONAZEPAM
     Indication: PRODUCT USED FOR UNKNOWN INDICATION
  3. DUODOPA [Suspect]
     Active Substance: CARBIDOPA\LEVODOPA
     Dosage: MD 7.2 CD 6.8 ED 4.5?DOSE INCREASED
     Route: 050
  4. DUODOPA [Suspect]
     Active Substance: CARBIDOPA\LEVODOPA
     Indication: PARKINSON^S DISEASE
     Dosage: DAYPUMP MD: 6,5 ML CD: 6,2 ML/U ED: 4,0 ML NIGHT PUMP CD 4,0?ML/U ED: 3,0 ML
     Route: 050
     Dates: start: 20190129, end: 2019
  5. DUODOPA [Suspect]
     Active Substance: CARBIDOPA\LEVODOPA
     Dosage: MD 6.5?CD 6.2?ED 3.5?NIGHT CD 3.2?NIGHT ED 3.0
     Route: 050
     Dates: start: 2019

REACTIONS (21)
  - Nocturia [Not Recovered/Not Resolved]
  - Hypersomnia [Not Recovered/Not Resolved]
  - Fall [Not Recovered/Not Resolved]
  - Confusional state [Not Recovered/Not Resolved]
  - Therapeutic product effect delayed [Not Recovered/Not Resolved]
  - Gait disturbance [Recovering/Resolving]
  - Hallucination [Not Recovered/Not Resolved]
  - Death [Fatal]
  - Personality disorder [Not Recovered/Not Resolved]
  - Drug ineffective [Recovered/Resolved]
  - Parkinson^s disease [Not Recovered/Not Resolved]
  - Speech disorder [Not Recovered/Not Resolved]
  - Malnutrition [Not Recovered/Not Resolved]
  - Fatigue [Not Recovered/Not Resolved]
  - Malaise [Not Recovered/Not Resolved]
  - Loss of personal independence in daily activities [Not Recovered/Not Resolved]
  - Freezing phenomenon [Not Recovered/Not Resolved]
  - Memory impairment [Not Recovered/Not Resolved]
  - Weight decreased [Not Recovered/Not Resolved]
  - Unevaluable event [Recovering/Resolving]
  - Bradykinesia [Not Recovered/Not Resolved]

NARRATIVE: CASE EVENT DATE: 2019
